FAERS Safety Report 8995023 (Version 2)
Quarter: 2013Q1

REPORT INFORMATION
  Report Type: Report from Study
  Country: US (occurrence: US)
  Receive Date: 20130102
  Receipt Date: 20130104
  Transmission Date: 20140127
  Serious: Yes (Hospitalization)
  Sender: FDA-Public Use
  Company Number: US-AMGEN-USACT2012084005

PATIENT
  Age: 87 Year
  Sex: Male
  Weight: 60.9 kg

DRUGS (2)
  1. EPOETIN ALFA - PROCRIT [Suspect]
     Indication: MYELODYSPLASTIC SYNDROME
     Dosage: 60,000 UNITS ON DAY 1 OF QWK
     Route: 058
     Dates: start: 20120607
  2. REVLIMID [Concomitant]
     Indication: MYELODYSPLASTIC SYNDROME
     Dosage: 40 MG, UNK
     Route: 048
     Dates: start: 20120607, end: 20121222

REACTIONS (3)
  - Renal failure chronic [Recovering/Resolving]
  - Blood bilirubin increased [Recovering/Resolving]
  - Bile duct stone [Recovering/Resolving]
